FAERS Safety Report 17389039 (Version 1)
Quarter: 2020Q1

REPORT INFORMATION
  Report Type: Spontaneous
  Country: FR (occurrence: FR)
  Receive Date: 20200207
  Receipt Date: 20200207
  Transmission Date: 20200409
  Serious: Yes (Other)
  Sender: FDA-Public Use
  Company Number: FR-PFIZER INC-2020051479

PATIENT
  Age: 57 Year
  Sex: Female

DRUGS (1)
  1. PREGABALIN. [Suspect]
     Active Substance: PREGABALIN
     Indication: ANXIETY
     Dosage: 300 MG, 1X/DAY
     Route: 048

REACTIONS (2)
  - Overdose [Not Recovered/Not Resolved]
  - Drug use disorder [Not Recovered/Not Resolved]
